FAERS Safety Report 25772953 (Version 1)
Quarter: 2025Q3

REPORT INFORMATION
  Report Type: Spontaneous
  Country: GB (occurrence: GB)
  Receive Date: 20250908
  Receipt Date: 20250908
  Transmission Date: 20251021
  Serious: Yes (Other)
  Sender: MYLAN
  Company Number: None

PATIENT
  Age: 66 Year
  Sex: Male
  Weight: 65 kg

DRUGS (28)
  1. ATORVASTATIN [Suspect]
     Active Substance: ATORVASTATIN
     Indication: Ill-defined disorder
     Dosage: 20 MILLIGRAM, QD (20MG TABLETSTAKE ONE TABLET ONCE A DAY TO LOWER CHOLESTEROL...)
     Dates: start: 20240226, end: 20250901
  2. ATORVASTATIN [Suspect]
     Active Substance: ATORVASTATIN
     Dosage: 20 MILLIGRAM, QD (20MG TABLETSTAKE ONE TABLET ONCE A DAY TO LOWER CHOLESTEROL...)
     Route: 065
     Dates: start: 20240226, end: 20250901
  3. ATORVASTATIN [Suspect]
     Active Substance: ATORVASTATIN
     Dosage: 20 MILLIGRAM, QD (20MG TABLETSTAKE ONE TABLET ONCE A DAY TO LOWER CHOLESTEROL...)
     Route: 065
     Dates: start: 20240226, end: 20250901
  4. ATORVASTATIN [Suspect]
     Active Substance: ATORVASTATIN
     Dosage: 20 MILLIGRAM, QD (20MG TABLETSTAKE ONE TABLET ONCE A DAY TO LOWER CHOLESTEROL...)
     Dates: start: 20240226, end: 20250901
  5. HYDROCORTISONE [Concomitant]
     Active Substance: HYDROCORTISONE
     Indication: Ill-defined disorder
     Dosage: UNK UNK, BID (APPLY TWICE DAILY)
     Dates: start: 20250620, end: 20250704
  6. HYDROCORTISONE [Concomitant]
     Active Substance: HYDROCORTISONE
     Dosage: UNK UNK, BID (APPLY TWICE DAILY)
     Route: 065
     Dates: start: 20250620, end: 20250704
  7. HYDROCORTISONE [Concomitant]
     Active Substance: HYDROCORTISONE
     Dosage: UNK UNK, BID (APPLY TWICE DAILY)
     Route: 065
     Dates: start: 20250620, end: 20250704
  8. HYDROCORTISONE [Concomitant]
     Active Substance: HYDROCORTISONE
     Dosage: UNK UNK, BID (APPLY TWICE DAILY)
     Dates: start: 20250620, end: 20250704
  9. Hydromol [Concomitant]
     Indication: Ill-defined disorder
  10. Hydromol [Concomitant]
     Route: 065
  11. Hydromol [Concomitant]
     Route: 065
  12. Hydromol [Concomitant]
  13. LOPERAMIDE [Concomitant]
     Active Substance: LOPERAMIDE
     Indication: Ill-defined disorder
  14. LOPERAMIDE [Concomitant]
     Active Substance: LOPERAMIDE
     Route: 065
  15. LOPERAMIDE [Concomitant]
     Active Substance: LOPERAMIDE
     Route: 065
  16. LOPERAMIDE [Concomitant]
     Active Substance: LOPERAMIDE
  17. EZETIMIBE [Concomitant]
     Active Substance: EZETIMIBE
     Indication: Ill-defined disorder
     Dosage: 1 DOSAGE FORM, QD (TAKE ONE TABLET ONCE A DAY TO LOWER CHOLESTEROL...)
     Dates: start: 20250901
  18. EZETIMIBE [Concomitant]
     Active Substance: EZETIMIBE
     Dosage: 1 DOSAGE FORM, QD (TAKE ONE TABLET ONCE A DAY TO LOWER CHOLESTEROL...)
     Route: 065
     Dates: start: 20250901
  19. EZETIMIBE [Concomitant]
     Active Substance: EZETIMIBE
     Dosage: 1 DOSAGE FORM, QD (TAKE ONE TABLET ONCE A DAY TO LOWER CHOLESTEROL...)
     Route: 065
     Dates: start: 20250901
  20. EZETIMIBE [Concomitant]
     Active Substance: EZETIMIBE
     Dosage: 1 DOSAGE FORM, QD (TAKE ONE TABLET ONCE A DAY TO LOWER CHOLESTEROL...)
     Dates: start: 20250901
  21. LANSOPRAZOLE [Concomitant]
     Active Substance: LANSOPRAZOLE
     Indication: Ill-defined disorder
     Dosage: 1 DOSAGE FORM, QD (TAKE ONE ONCE DAILY)
     Dates: start: 20241206
  22. LANSOPRAZOLE [Concomitant]
     Active Substance: LANSOPRAZOLE
     Dosage: 1 DOSAGE FORM, QD (TAKE ONE ONCE DAILY)
     Route: 065
     Dates: start: 20241206
  23. LANSOPRAZOLE [Concomitant]
     Active Substance: LANSOPRAZOLE
     Dosage: 1 DOSAGE FORM, QD (TAKE ONE ONCE DAILY)
     Route: 065
     Dates: start: 20241206
  24. LANSOPRAZOLE [Concomitant]
     Active Substance: LANSOPRAZOLE
     Dosage: 1 DOSAGE FORM, QD (TAKE ONE ONCE DAILY)
     Dates: start: 20241206
  25. EUCERIN [Concomitant]
     Active Substance: ENSULIZOLE\EUCERIN\OCTINOXATE\OCTISALATE\TITANIUM DIOXIDE\ZINC OXIDE
     Indication: Ill-defined disorder
  26. EUCERIN [Concomitant]
     Active Substance: ENSULIZOLE\EUCERIN\OCTINOXATE\OCTISALATE\TITANIUM DIOXIDE\ZINC OXIDE
     Route: 065
  27. EUCERIN [Concomitant]
     Active Substance: ENSULIZOLE\EUCERIN\OCTINOXATE\OCTISALATE\TITANIUM DIOXIDE\ZINC OXIDE
     Route: 065
  28. EUCERIN [Concomitant]
     Active Substance: ENSULIZOLE\EUCERIN\OCTINOXATE\OCTISALATE\TITANIUM DIOXIDE\ZINC OXIDE

REACTIONS (1)
  - Pruritus [Recovered/Resolved]
